FAERS Safety Report 7734170-4 (Version None)
Quarter: 2011Q3

REPORT INFORMATION
  Report Type: 
  Country: None (occurrence: None)
  Receive Date: 20110906
  Receipt Date: 20110906
  Transmission Date: 20111222
  Serious: Yes (Life-Threatening, Hospitalization)
  Sender: FDA-Public Use
  Company Number: None

PATIENT
  Age: 60 Year
  Sex: Male
  Weight: 73.9 kg

DRUGS (2)
  1. SULFAMETHOXAZOLE AND TRIMETHOPRIM [Suspect]
     Indication: PNEUMOCYSTIS JIROVECI PNEUMONIA
     Dates: start: 20110604, end: 20110616
  2. SULFAMETHOXAZOLE AND TRIMETHOPRIM [Suspect]
     Indication: HIV TEST POSITIVE
     Dates: start: 20110604, end: 20110616

REACTIONS (3)
  - RENAL FAILURE ACUTE [None]
  - HYPERKALAEMIA [None]
  - DIALYSIS [None]
